FAERS Safety Report 6068974-3 (Version None)
Quarter: 2009Q1

REPORT INFORMATION
  Report Type: 
  Country: None (occurrence: None)
  Receive Date: 20090206
  Receipt Date: 20090127
  Transmission Date: 20090719
  Serious: Yes (Hospitalization)
  Sender: FDA-Public Use
  Company Number: NL-WATSON-2009-00432

PATIENT
  Age: 52 Year
  Sex: Female

DRUGS (1)
  1. CHLORDIAZEPOXIDE/AMITRIPTYLINE HCL (UNKNOWN STRENGTH) (WATSON) [Suspect]
     Indication: MAJOR DEPRESSION
     Dosage: UNK

REACTIONS (1)
  - BRUGADA SYNDROME [None]
